FAERS Safety Report 11688993 (Version 1)
Quarter: 2015Q4

REPORT INFORMATION
  Report Type: Spontaneous
  Country: US (occurrence: None)
  Receive Date: 20151030
  Receipt Date: 20151030
  Transmission Date: 20160304
  Serious: Yes (Other)
  Sender: FDA-Public Use
  Company Number: None

PATIENT
  Age: 77 Year
  Sex: Male
  Weight: 93.5 kg

DRUGS (1)
  1. LEXISCAN [Suspect]
     Active Substance: REGADENOSON
     Indication: CARDIAC STRESS TEST
     Dosage: 1 INJECTION (5ML)
     Route: 042
     Dates: start: 20151028, end: 20151028

REACTIONS (2)
  - Gastrointestinal disorder [None]
  - Hypotension [None]

NARRATIVE: CASE EVENT DATE: 20151028
